FAERS Safety Report 6382707-2 (Version None)
Quarter: 2009Q3

REPORT INFORMATION
  Report Type: 
  Country: None (occurrence: None)
  Receive Date: 20090928
  Receipt Date: 20090928
  Transmission Date: 20100115
  Serious: Yes (Other)
  Sender: FDA-Public Use
  Company Number: None

PATIENT
  Age: 63 Year
  Sex: Female
  Weight: 53.5244 kg

DRUGS (1)
  1. ACTONEL [Suspect]
     Indication: OSTEOPENIA
     Dosage: 150 MG MONTHLY PO
     Route: 048
     Dates: start: 20090912, end: 20090912

REACTIONS (12)
  - ARTHRALGIA [None]
  - ASTHENIA [None]
  - DIZZINESS [None]
  - FALL [None]
  - FEELING COLD [None]
  - HYPERHIDROSIS [None]
  - IMPAIRED WORK ABILITY [None]
  - MYALGIA [None]
  - NAUSEA [None]
  - RETCHING [None]
  - UNEVALUABLE EVENT [None]
  - VERTIGO [None]
